FAERS Safety Report 24222748 (Version 1)
Quarter: 2024Q3

REPORT INFORMATION
  Report Type: Report from Study
  Country: US (occurrence: US)
  Receive Date: 20240819
  Receipt Date: 20240819
  Transmission Date: 20241016
  Serious: No
  Sender: ROCHE
  Company Number: US-ROCHE-10000057074

PATIENT
  Age: 49 Year
  Sex: Female
  Weight: 102.05 kg

DRUGS (13)
  1. OCREVUS [Suspect]
     Active Substance: OCRELIZUMAB
     Indication: Multiple sclerosis
     Route: 065
  2. OCREVUS [Suspect]
     Active Substance: OCRELIZUMAB
     Dosage: INFUSE 300 MG BY IV THEN IN WEEK 2 INFUSE 300 MG BY IV FOLLOWED BY 600 MG BY IV
     Route: 042
  3. OCREVUS [Suspect]
     Active Substance: OCRELIZUMAB
     Dosage: INFUSE 300 MG BY IV THEN IN WEEK 2 INFUSE 300 MG BY IV FOLLOWED BY 600 MG BY IV
     Route: 042
  4. TORADOL [Concomitant]
     Active Substance: KETOROLAC TROMETHAMINE
     Dosage: 30-60 MG SLOW IVP FOR HEADACHE OR GENERALIZED PAIN
  5. ARMODAFINIL [Concomitant]
     Active Substance: ARMODAFINIL
     Route: 048
  6. BUPROPION HYDROCHLORIDE [Concomitant]
     Active Substance: BUPROPION HYDROCHLORIDE
  7. DIAZEPAM [Concomitant]
     Active Substance: DIAZEPAM
  8. DULOXETINE [Concomitant]
     Active Substance: DULOXETINE
  9. ESOMEPRAZOLE MAGNESIUM [Concomitant]
     Active Substance: ESOMEPRAZOLE MAGNESIUM
  10. GEMTESA [Concomitant]
     Active Substance: VIBEGRON
  11. LEVOTHYROXINE [Concomitant]
     Active Substance: LEVOTHYROXINE\LEVOTHYROXINE SODIUM
  12. METOPROLOL SUCCINATE [Concomitant]
     Active Substance: METOPROLOL SUCCINATE
  13. UBRELVY [Concomitant]
     Active Substance: UBROGEPANT

REACTIONS (6)
  - Depression [Unknown]
  - Neuropathy peripheral [Unknown]
  - Paraesthesia [Unknown]
  - Vitamin D decreased [Unknown]
  - Hypertension [Unknown]
  - Varicella [Unknown]
